FAERS Safety Report 5726509-6 (Version None)
Quarter: 2008Q2

REPORT INFORMATION
  Report Type: 
  Country: None (occurrence: None)
  Receive Date: 20080502
  Receipt Date: 20080424
  Transmission Date: 20081010
  Serious: Yes (Death, Hospitalization, Disabling, Other)
  Sender: FDA-Public Use
  Company Number: US-MERCK-0708USA00616

PATIENT
  Age: 59 Year
  Sex: Female

DRUGS (2)
  1. FOSAMAX [Suspect]
     Indication: OSTEOPOROSIS
     Route: 048
     Dates: start: 20030101
  2. ZOMETA [Suspect]
     Route: 042

REACTIONS (17)
  - ADVERSE DRUG REACTION [None]
  - ANAEMIA [None]
  - BREAST CANCER METASTATIC [None]
  - BREAST CANCER RECURRENT [None]
  - BREAST DISORDER [None]
  - HYPOAESTHESIA [None]
  - INJECTION SITE PAIN [None]
  - JOINT SWELLING [None]
  - METASTASES TO SPINE [None]
  - NEOPLASM MALIGNANT [None]
  - NERVE COMPRESSION [None]
  - OSTEONECROSIS [None]
  - PAIN [None]
  - SCIATICA [None]
  - SPINAL COMPRESSION FRACTURE [None]
  - SPINAL OSTEOARTHRITIS [None]
  - SPONDYLITIS [None]
